FAERS Safety Report 19661337 (Version 2)
Quarter: 2021Q3

REPORT INFORMATION
  Report Type: Spontaneous
  Country: US (occurrence: US)
  Receive Date: 20210805
  Receipt Date: 20210830
  Transmission Date: 20211014
  Serious: No
  Sender: FDA-Public Use
  Company Number: US-BEH-2021134613

PATIENT
  Age: 40 Year
  Sex: Female
  Weight: 66.67 kg

DRUGS (3)
  1. HIZENTRA [Suspect]
     Active Substance: HUMAN IMMUNOGLOBULIN G
     Indication: CHRONIC INFLAMMATORY DEMYELINATING POLYRADICULONEUROPATHY
     Dosage: 5 GRAM, QW
     Route: 058
     Dates: start: 202106
  2. HIZENTRA [Suspect]
     Active Substance: HUMAN IMMUNOGLOBULIN G
     Indication: ENCEPHALOPATHY
     Dosage: 13 GRAM, QW
     Route: 058
     Dates: start: 20210610
  3. HIZENTRA [Suspect]
     Active Substance: HUMAN IMMUNOGLOBULIN G
     Indication: ENCEPHALOMYELITIS
     Dosage: 60 GRAM, QW
     Route: 058
     Dates: start: 202106

REACTIONS (7)
  - Infusion site swelling [Unknown]
  - Infusion site pain [Unknown]
  - Product use in unapproved indication [Unknown]
  - Weight increased [Unknown]
  - Infusion site pruritus [Unknown]
  - No adverse event [Unknown]
  - Infusion site mass [Not Recovered/Not Resolved]
